FAERS Safety Report 9182443 (Version 2)
Quarter: 2013Q4

REPORT INFORMATION
  Report Type: Spontaneous
  Country: US (occurrence: US)
  Receive Date: 20121030
  Receipt Date: 20131004
  Transmission Date: 20140711
  Serious: No
  Sender: FDA-Public Use
  Company Number: US-GLAXOSMITHKLINE-A0975040A

PATIENT
  Sex: Female

DRUGS (8)
  1. IMITREX [Suspect]
     Indication: MIGRAINE
     Dosage: 20MG AS REQUIRED
     Route: 045
     Dates: start: 20110819
  2. TREXIMET [Suspect]
     Indication: MIGRAINE
     Route: 065
  3. BENADRYL [Concomitant]
  4. TRIAMTERENE + HYDROCHLOROTHIAZIDE [Concomitant]
  5. VITAMIN E [Concomitant]
  6. CENTRUM [Concomitant]
  7. AMOXICILLIN [Concomitant]
  8. VITAMIN B12 [Concomitant]

REACTIONS (8)
  - Abdominal discomfort [Unknown]
  - Diarrhoea [Unknown]
  - Migraine [Unknown]
  - Nausea [Not Recovered/Not Resolved]
  - Depression [Unknown]
  - Vomiting [Not Recovered/Not Resolved]
  - Vision blurred [Not Recovered/Not Resolved]
  - Weight increased [Not Recovered/Not Resolved]
